FAERS Safety Report 4905390-9 (Version None)
Quarter: 2006Q1

REPORT INFORMATION
  Report Type: 
  Country: None (occurrence: None)
  Receive Date: 20060207
  Receipt Date: 20060207
  Transmission Date: 20060701
  Serious: No
  Sender: FDA-Public Use
  Company Number: None

PATIENT
  Age: 54 Year
  Sex: Female
  Weight: 45 kg

DRUGS (2)
  1. EQUATE MADE BY PERRIGO    NASAL DECONGESTANT OXYMETAZOLINE 0.05% [Suspect]
     Indication: NASAL CONGESTION
     Dosage: 1 SPRAY EACH NOSTRIL   Q 12 HOURS  NASAL  (USED ONE TIME)
     Route: 045
  2. EQUATE MADE BY PERRIGO    NASAL DECONGESTANT OXYMETAZOLINE 0.05% [Suspect]
     Indication: NASOPHARYNGITIS
     Dosage: 1 SPRAY EACH NOSTRIL   Q 12 HOURS  NASAL  (USED ONE TIME)
     Route: 045

REACTIONS (6)
  - AGITATION [None]
  - DYSKINESIA [None]
  - FEELING JITTERY [None]
  - INCORRECT DOSE ADMINISTERED [None]
  - PHARMACEUTICAL PRODUCT COMPLAINT [None]
  - THERAPEUTIC RESPONSE UNEXPECTED WITH DRUG SUBSTITUTION [None]
